FAERS Safety Report 9189661 (Version 1)
Quarter: 2013Q1

REPORT INFORMATION
  Report Type: Spontaneous
  Country: US (occurrence: US)
  Receive Date: 20130326
  Receipt Date: 20130326
  Transmission Date: 20140127
  Serious: No
  Sender: FDA-Public Use
  Company Number: US-BAYER-2013-037622

PATIENT
  Age: 69 Year
  Sex: Female
  Weight: 81.63 kg

DRUGS (3)
  1. ALEVE CAPLET/TABLET,MIDOL EXTENDED RELIEF CAPLET [Suspect]
     Indication: ANALGESIC THERAPY
     Dosage: 1 DF, PRN
     Route: 048
  2. HEART MEDICATION [Concomitant]
  3. ASPIRIN [ACETYLSALICYLIC ACID] [Concomitant]

REACTIONS (1)
  - Dysgeusia [Recovered/Resolved]
